FAERS Safety Report 13272256 (Version 3)
Quarter: 2017Q1

REPORT INFORMATION
  Report Type: Report from Study
  Country: US (occurrence: US)
  Receive Date: 20170227
  Receipt Date: 20170227
  Transmission Date: 20170428
  Serious: No
  Sender: FDA-Public Use
  Company Number: PHHY2017US028046

PATIENT
  Sex: Male

DRUGS (1)
  1. GENERIC DICLOFENAC [Suspect]
     Active Substance: DICLOFENAC
     Indication: BACK PAIN
     Dosage: 1 % (DID PUT A LITTLE BIT ON HIS BACK A COUPLE OF DAYS AGO)
     Route: 065

REACTIONS (3)
  - Drug administered at inappropriate site [Unknown]
  - Incorrect dose administered [Unknown]
  - Off label use [Unknown]
